FAERS Safety Report 15684191 (Version 1)
Quarter: 2018Q4

REPORT INFORMATION
  Report Type: Spontaneous
  Country: FR (occurrence: FR)
  Receive Date: 20181204
  Receipt Date: 20181204
  Transmission Date: 20190205
  Serious: Yes (Hospitalization)
  Sender: FDA-Public Use
  Company Number: FR-B.I. PHARMACEUTICALS,INC./RIDGEFIELD-2018-12-003905

PATIENT
  Age: 2 Year
  Sex: Male
  Weight: 10.7 kg

DRUGS (2)
  1. SUFENTANIL [Suspect]
     Active Substance: SUFENTANIL
     Indication: GENERAL ANAESTHESIA
     Route: 042
     Dates: start: 20181107, end: 20181107
  2. CATAPRESSAN [Suspect]
     Active Substance: CLONIDINE
     Indication: GENERAL ANAESTHESIA
     Dosage: CATAPRESSAN 0,15 MG/ML, SOLUTION INJECTABLE
     Route: 042
     Dates: start: 20181107, end: 20181107

REACTIONS (2)
  - Delayed recovery from anaesthesia [Recovered/Resolved]
  - Miosis [Recovered/Resolved]

NARRATIVE: CASE EVENT DATE: 20181107
